FAERS Safety Report 4981011-4 (Version None)
Quarter: 2006Q1

REPORT INFORMATION
  Report Type: 
  Country: None (occurrence: None)
  Receive Date: 20060224
  Receipt Date: 20060117
  Transmission Date: 20060701
  Serious: Yes (Hospitalization)
  Sender: FDA-Public Use
  Company Number: 2006-BP-00532RO

PATIENT
  Age: 51 Year
  Sex: Male

DRUGS (1)
  1. MERCAPTOPURINE [Suspect]
     Indication: CROHN'S DISEASE
     Dosage: 50 MG DAILY (50 MG), PO
     Route: 048
     Dates: start: 20051201, end: 20060101

REACTIONS (2)
  - CHILLS [None]
  - PYREXIA [None]
